FAERS Safety Report 9360282 (Version 2)
Quarter: 2013Q3

REPORT INFORMATION
  Report Type: Report from Study
  Country: FR (occurrence: FR)
  Receive Date: 20130621
  Receipt Date: 20130703
  Transmission Date: 20140515
  Serious: Yes (Hospitalization)
  Sender: FDA-Public Use
  Company Number: FR-ROCHE-1238912

PATIENT
  Age: 80 Year
  Sex: Male
  Weight: 80 kg

DRUGS (7)
  1. MIRCERA [Suspect]
     Indication: ANAEMIA OF CHRONIC DISEASE
     Route: 042
     Dates: start: 20130326
  2. HYDROXYZINE [Concomitant]
     Route: 048
     Dates: start: 20130319
  3. RAMIPRIL [Concomitant]
     Route: 048
     Dates: start: 20130319, end: 20130608
  4. ESOMEPRAZOLE [Concomitant]
     Route: 048
  5. FUROSEMIDE [Concomitant]
     Route: 048
  6. WARFARIN [Concomitant]
     Route: 048
     Dates: start: 201305
  7. VANCOMYCIN [Concomitant]

REACTIONS (1)
  - Radiation proctitis [Recovered/Resolved]
